FAERS Safety Report 5245984-7 (Version None)
Quarter: 2007Q1

REPORT INFORMATION
  Report Type: 
  Country: None (occurrence: None)
  Receive Date: 20070220
  Receipt Date: 20070214
  Transmission Date: 20070707
  Serious: Yes (Hospitalization)
  Sender: FDA-Public Use
  Company Number: TCI2006A03550

PATIENT
  Age: 51 Year
  Sex: Female

DRUGS (7)
  1. LEUPRORELIN DEPOT (3M) (LEUPROLIDE ACETATE) (INJECTION) [Suspect]
     Indication: BREAST CANCER
     Dosage: 11.25 MG (11.25 MG, 1 IN 12 WK) SUBCUTANEOUS
     Route: 058
     Dates: start: 20060726
  2. NOLVADEX [Suspect]
     Indication: BREAST CANCER
     Dosage: 20 MG (20 MG, 1 D) PER ORAL
     Route: 048
     Dates: start: 20060726, end: 20070117
  3. NOLVADEX [Suspect]
     Indication: BREAST CANCER
     Dosage: 20 MG (20 MG, 1 D) PER ORAL
     Route: 048
     Dates: start: 20070202
  4. TAKEPRON (LANSOPRAZOLE) (TABLETS) [Concomitant]
  5. BENET TABLETS 2.5MG (RISEDRONATE SODIUM) (TABLETS) [Concomitant]
  6. ONEALFA (ALFACALCIDOL) (TABLETS) [Concomitant]
  7. PURSENNID (SENNOSIDE A+B CALCIUM) (TABLETS) [Concomitant]

REACTIONS (13)
  - BLOOD BICARBONATE INCREASED [None]
  - BLOOD PH INCREASED [None]
  - CONSTIPATION [None]
  - COUGH [None]
  - CRYPTOGENIC ORGANISING PNEUMONIA [None]
  - DYSPNOEA [None]
  - HOT FLUSH [None]
  - INJECTION SITE INDURATION [None]
  - INSOMNIA [None]
  - LYMPHOCYTE PERCENTAGE DECREASED [None]
  - MONOCYTE PERCENTAGE DECREASED [None]
  - NASOPHARYNGITIS [None]
  - NEUTROPHIL PERCENTAGE INCREASED [None]
